FAERS Safety Report 14999594 (Version 1)
Quarter: 2018Q2

REPORT INFORMATION
  Report Type: Spontaneous
  Country: DE (occurrence: DE)
  Receive Date: 20180612
  Receipt Date: 20180612
  Transmission Date: 20180711
  Serious: Yes (Hospitalization)
  Sender: FDA-Public Use
  Company Number: DE-CONCORDIA PHARMACEUTICALS INC.-E2B_00012409

PATIENT
  Age: 31 Year
  Sex: Female

DRUGS (5)
  1. FRAGMIN [Suspect]
     Active Substance: DALTEPARIN SODIUM
  2. PREDNISOLONE. [Suspect]
     Active Substance: PREDNISOLONE
  3. BREVACTID 5000 [Suspect]
     Active Substance: GONADOTROPHIN, CHORIONIC
  4. ORGALUTRAN [Suspect]
     Active Substance: GANIRELIX ACETATE
  5. PUREGON (FOLLITROPIN BETA) [Suspect]
     Active Substance: FOLLITROPIN

REACTIONS (1)
  - Ovarian hyperstimulation syndrome [Recovered/Resolved]

NARRATIVE: CASE EVENT DATE: 20180511
